FAERS Safety Report 9088756 (Version 1)
Quarter: 2013Q1

REPORT INFORMATION
  Report Type: Spontaneous
  Country: IT (occurrence: IT)
  Receive Date: 20130131
  Receipt Date: 20130131
  Transmission Date: 20140127
  Serious: Yes (Hospitalization)
  Sender: FDA-Public Use
  Company Number: PHHY2013IT007896

PATIENT
  Age: 67 Year
  Sex: Female

DRUGS (3)
  1. FLUOXETINE [Suspect]
     Indication: MAJOR DEPRESSION
     Dosage: 20 MG, QD
     Route: 048
     Dates: start: 19890101
  2. CARBOLITHIUM [Concomitant]
     Dates: start: 19880101
  3. EUTIROX [Concomitant]

REACTIONS (1)
  - Lung disorder [Not Recovered/Not Resolved]
